FAERS Safety Report 6922910-3 (Version None)
Quarter: 2010Q3

REPORT INFORMATION
  Report Type: 
  Country: None (occurrence: None)
  Receive Date: 20100813
  Receipt Date: 20100802
  Transmission Date: 20110219
  Serious: Yes (Other)
  Sender: FDA-Public Use
  Company Number: PHFR2010GB01185

PATIENT
  Sex: Female
  Weight: 100 kg

DRUGS (8)
  1. VOLTAREN [Suspect]
     Indication: BACK PAIN
     Dosage: 150 MG
     Route: 048
     Dates: start: 20100610, end: 20100613
  2. CEFUROXIME [Concomitant]
     Indication: STAPHYLOCOCCAL INFECTION
     Dosage: 1.5 G
     Route: 042
     Dates: start: 20100610, end: 20100616
  3. DAPTOMYCIN [Concomitant]
     Indication: STAPHYLOCOCCAL INFECTION
     Dosage: UNK
     Dates: start: 20100618
  4. ROSUVASTATIN [Concomitant]
     Dosage: 20 MG
     Route: 048
  5. LOSARTAN POTASSIUM [Concomitant]
     Dosage: 50 MG
     Route: 048
  6. ACETYLSALICYLIC ACID SRT [Concomitant]
     Dosage: 75 MG
     Route: 048
  7. OMEPRAZOLE [Concomitant]
     Dosage: 20 MG
     Route: 048
  8. TRAMADOL HCL [Concomitant]
     Dosage: 200 MG
     Route: 048

REACTIONS (5)
  - ATELECTASIS [None]
  - BLOOD CREATINE PHOSPHOKINASE INCREASED [None]
  - BLOOD CREATININE INCREASED [None]
  - C-REACTIVE PROTEIN INCREASED [None]
  - STAPHYLOCOCCUS TEST POSITIVE [None]
